FAERS Safety Report 7688553-1 (Version None)
Quarter: 2011Q3

REPORT INFORMATION
  Report Type: 
  Country: None (occurrence: None)
  Receive Date: 20110817
  Receipt Date: 20110817
  Transmission Date: 20111222
  Serious: Yes (Hospitalization, Disabling)
  Sender: FDA-Public Use
  Company Number: None

PATIENT
  Age: 90 Year
  Sex: Female
  Weight: 60 kg

DRUGS (1)
  1. LOTREL [Suspect]
     Indication: HYPERTENSION
     Dosage: 1 DOSE
     Route: 048
     Dates: start: 20000810, end: 20110810

REACTIONS (4)
  - PROTRUSION TONGUE [None]
  - ANGIOEDEMA [None]
  - DYSPNOEA [None]
  - DYSPHAGIA [None]
